FAERS Safety Report 4868115-1 (Version None)
Quarter: 2005Q4

REPORT INFORMATION
  Report Type: 
  Country: None (occurrence: None)
  Receive Date: 20051229
  Receipt Date: 20051222
  Transmission Date: 20060501
  Serious: Yes (Other)
  Sender: FDA-Public Use
  Company Number: PHBS2005ES18861

PATIENT
  Age: 68 Year
  Sex: Female

DRUGS (1)
  1. ZOMETA [Suspect]
     Indication: MULTIPLE MYELOMA
     Dosage: 4 MG
     Route: 042
     Dates: start: 20031216, end: 20051019

REACTIONS (1)
  - OSTEONECROSIS [None]
